FAERS Safety Report 13822479 (Version 3)
Quarter: 2017Q4

REPORT INFORMATION
  Report Type: Spontaneous
  Country: US (occurrence: US)
  Receive Date: 20170801
  Receipt Date: 20171013
  Transmission Date: 20180320
  Serious: Yes (Other)
  Sender: FDA-Public Use
  Company Number: US-ELI_LILLY_AND_COMPANY-US201707010305

PATIENT
  Age: 61 Year
  Sex: Female
  Weight: 77 kg

DRUGS (5)
  1. XANAX [Concomitant]
     Active Substance: ALPRAZOLAM
     Indication: PRODUCT USED FOR UNKNOWN INDICATION
     Dosage: UNK, UNKNOWN
     Route: 065
  2. LISINOPRIL. [Concomitant]
     Active Substance: LISINOPRIL
     Indication: HYPERTENSION
     Dosage: UNK, UNKNOWN
     Route: 065
  3. AMLODIPINE [Concomitant]
     Active Substance: AMLODIPINE BESYLATE
     Indication: HYPERTENSION
  4. CYMBALTA [Suspect]
     Active Substance: DULOXETINE HYDROCHLORIDE
     Indication: DEPRESSION
     Dosage: 30 MG, EACH MORNING
     Route: 048
     Dates: start: 2005
  5. CYMBALTA [Suspect]
     Active Substance: DULOXETINE HYDROCHLORIDE
     Dosage: 30 MG, EACH EVENING
     Route: 048
     Dates: start: 2005

REACTIONS (41)
  - Lumbosacral radiculopathy [Unknown]
  - Pain [Unknown]
  - Ear congestion [Unknown]
  - Irritable bowel syndrome [Unknown]
  - Toothache [Unknown]
  - Blood thyroid stimulating hormone abnormal [Unknown]
  - Temperature intolerance [Unknown]
  - Pyrexia [Unknown]
  - Anxiety [Unknown]
  - Fatigue [Unknown]
  - Arthralgia [Unknown]
  - Diarrhoea [Unknown]
  - Sleep disorder [Unknown]
  - Hypersensitivity [Unknown]
  - Intervertebral disc degeneration [Unknown]
  - Seasonal allergy [Unknown]
  - Pain in extremity [Unknown]
  - Impulsive behaviour [Unknown]
  - Chills [Unknown]
  - Asthenia [Unknown]
  - Muscle spasms [Unknown]
  - Poor quality sleep [Unknown]
  - Musculoskeletal pain [Unknown]
  - Tachycardia [Unknown]
  - Chest discomfort [Unknown]
  - Nausea [Unknown]
  - Vitamin B12 decreased [Unknown]
  - Spinal osteoarthritis [Unknown]
  - Muscular weakness [Unknown]
  - Dysphoria [Unknown]
  - Vomiting [Unknown]
  - Tinnitus [Unknown]
  - Heart rate increased [Unknown]
  - Overweight [Unknown]
  - Vertigo [Unknown]
  - Sensory loss [Unknown]
  - Upper respiratory tract infection [Unknown]
  - Cough [Unknown]
  - Weight decreased [Unknown]
  - Angioedema [Unknown]
  - Pruritus [Unknown]

NARRATIVE: CASE EVENT DATE: 20140324
